FAERS Safety Report 7084488-6 (Version None)
Quarter: 2010Q4

REPORT INFORMATION
  Report Type: 
  Country: None (occurrence: None)
  Receive Date: 20101104
  Receipt Date: 20101102
  Transmission Date: 20110411
  Serious: No
  Sender: FDA-Public Use
  Company Number: US-PFIZER INC-2010106108

PATIENT
  Sex: Male
  Weight: 98.429 kg

DRUGS (8)
  1. LIPITOR [Suspect]
     Indication: MYOCARDIAL INFARCTION
     Dosage: 10 MG, DAILY
     Route: 048
     Dates: start: 20100729
  2. LIPITOR [Suspect]
     Indication: BLOOD CHOLESTEROL INCREASED
  3. LIPITOR [Suspect]
     Indication: LOW DENSITY LIPOPROTEIN INCREASED
  4. LIPITOR [Suspect]
     Indication: ARTERIOSCLEROSIS
  5. LEXAPRO [Concomitant]
     Indication: ANXIETY
     Dosage: 10 MG, 1X/DAY
  6. LOSARTAN POTASSIUM AND HYDROCHLOROTHIAZIDE [Concomitant]
     Indication: HYPERTENSION
     Dosage: 50/12.5 MG
  7. CARDIZEM CD [Concomitant]
     Dosage: 180 MG, 1X/DAY
  8. HYZAAR [Concomitant]
     Dosage: HYDROCHLOROTHIAZIDE 12.5 MG: LOSARTAN: 50 MG

REACTIONS (2)
  - MYALGIA [None]
  - PAIN IN EXTREMITY [None]
